FAERS Safety Report 9504376 (Version 3)
Quarter: 2014Q1

REPORT INFORMATION
  Report Type: Spontaneous
  Country: US (occurrence: US)
  Receive Date: 20130906
  Receipt Date: 20140307
  Transmission Date: 20141002
  Serious: Yes (Hospitalization, Other)
  Sender: FDA-Public Use
  Company Number: US-009507513-1203USA01684

PATIENT
  Sex: Female
  Weight: 73.92 kg

DRUGS (7)
  1. FOSAMAX [Suspect]
     Indication: OSTEOPOROSIS
     Dosage: 70 MG, UNK
     Route: 048
     Dates: start: 20030721, end: 20090709
  2. FOSAMAX PLUS D [Suspect]
     Indication: OSTEOPOROSIS
     Dosage: 70 MG, UNK
     Route: 048
     Dates: end: 2009
  3. ALENDRONATE SODIUM [Suspect]
     Indication: OSTEOPOROSIS
     Dosage: 70 MG, UNK
     Route: 048
     Dates: end: 2009
  4. ARICEPT [Concomitant]
     Indication: MENOPAUSE
  5. HERBS (UNSPECIFIED) [Concomitant]
     Indication: MENOPAUSE
  6. LIPITOR [Concomitant]
  7. CRESTOR [Concomitant]

REACTIONS (43)
  - Femur fracture [Unknown]
  - Open reduction of fracture [Recovered/Resolved]
  - Cerebrovascular accident [Recovered/Resolved]
  - Neurogenic bladder [Unknown]
  - Aphasia [Recovered/Resolved]
  - Spastic paralysis [Unknown]
  - Bone loss [Unknown]
  - Tooth extraction [Unknown]
  - Dental prosthesis user [Unknown]
  - Low turnover osteopathy [Unknown]
  - Polypectomy [Recovering/Resolving]
  - Musculoskeletal disorder [Unknown]
  - Sleep disorder [Unknown]
  - Restless legs syndrome [Unknown]
  - Osteoarthritis [Unknown]
  - Fatigue [Unknown]
  - Depression [Unknown]
  - Insomnia [Unknown]
  - Vascular dementia [Unknown]
  - Transient ischaemic attack [Unknown]
  - Cerebral disorder [Unknown]
  - Breast lump removal [Unknown]
  - Radiculitis lumbosacral [Unknown]
  - Radiculitis cervical [Unknown]
  - Cerebrovascular disorder [Not Recovered/Not Resolved]
  - Embolic stroke [Unknown]
  - Anxiety [Unknown]
  - Arthritis [Not Recovered/Not Resolved]
  - Benign neoplasm of thyroid gland [Unknown]
  - Urinary tract infection [Recovered/Resolved]
  - Left ventricular dysfunction [Unknown]
  - Atelectasis [Recovered/Resolved]
  - Anaemia [Unknown]
  - Hypoproteinaemia [Unknown]
  - Nasal congestion [Unknown]
  - Bone scan abnormal [Unknown]
  - Muscle spasms [Unknown]
  - Dysphagia [Recovered/Resolved]
  - Gastrooesophageal reflux disease [Not Recovered/Not Resolved]
  - Vertigo [Unknown]
  - Headache [Unknown]
  - Constipation [Unknown]
  - Bone pain [Unknown]
